FAERS Safety Report 4423622-0 (Version None)
Quarter: 2004Q3

REPORT INFORMATION
  Report Type: 
  Country: None (occurrence: None)
  Receive Date: 20040719
  Receipt Date: 20040520
  Transmission Date: 20050211
  Serious: Yes (Other)
  Sender: FDA-Public Use
  Company Number: A03200401679

PATIENT
  Age: 72 Year
  Sex: Male

DRUGS (1)
  1. UROXATRAL [Suspect]
     Indication: BENIGN PROSTATIC HYPERPLASIA
     Dosage: 10 MG OD; ORAL
     Route: 048
     Dates: start: 20040517, end: 20040519

REACTIONS (2)
  - DIZZINESS [None]
  - SYNCOPE [None]
